FAERS Safety Report 7053862-6 (Version None)
Quarter: 2010Q4

REPORT INFORMATION
  Report Type: 
  Country: None (occurrence: None)
  Receive Date: 20101020
  Receipt Date: 20101012
  Transmission Date: 20110411
  Serious: Yes (Other)
  Sender: FDA-Public Use
  Company Number: FR-WATSON-2010-13669

PATIENT
  Age: 40 Year
  Sex: Male

DRUGS (2)
  1. TRAMADOL HCL [Suspect]
     Indication: BACK PAIN
     Dosage: 500 MG, DAILY
  2. TRAMADOL HCL [Suspect]
     Dosage: 100 MG, DAILY

REACTIONS (5)
  - DEPENDENCE [None]
  - DRUG ABUSE [None]
  - OVERDOSE [None]
  - TIC [None]
  - WITHDRAWAL SYNDROME [None]
